FAERS Safety Report 24867747 (Version 1)
Quarter: 2025Q1

REPORT INFORMATION
  Report Type: Spontaneous
  Country: US (occurrence: US)
  Receive Date: 20250121
  Receipt Date: 20250121
  Transmission Date: 20250409
  Serious: No
  Sender: ROCHE
  Company Number: US-ROCHE-10000179476

PATIENT
  Age: 31 Year
  Sex: Male

DRUGS (2)
  1. XOLAIR PFS [Suspect]
     Active Substance: OMALIZUMAB
     Indication: Asthma
     Route: 058
  2. XOLAIR PFS [Suspect]
     Active Substance: OMALIZUMAB

REACTIONS (5)
  - Oropharyngeal pain [Unknown]
  - Influenza [Recovered/Resolved]
  - Pneumonia [Recovered/Resolved]
  - COVID-19 [Recovered/Resolved]
  - Gastric infection [Recovered/Resolved]
